FAERS Safety Report 6801505-6 (Version None)
Quarter: 2010Q2

REPORT INFORMATION
  Report Type: 
  Country: None (occurrence: None)
  Receive Date: 20100629
  Receipt Date: 20100621
  Transmission Date: 20101027
  Serious: Yes (Other)
  Sender: FDA-Public Use
  Company Number: CA-ASTRAZENECA-2010SE29258

PATIENT
  Sex: Male

DRUGS (1)
  1. SEROQUEL [Suspect]
     Route: 048

REACTIONS (5)
  - HEART RATE IRREGULAR [None]
  - PYREXIA [None]
  - URINE ABNORMALITY [None]
  - VOMITING [None]
  - WALKING DISABILITY [None]
